FAERS Safety Report 5443631-2 (Version None)
Quarter: 2007Q3

REPORT INFORMATION
  Report Type: 
  Country: None (occurrence: None)
  Receive Date: 20070905
  Receipt Date: 20070830
  Transmission Date: 20080115
  Serious: Yes (Other)
  Sender: FDA-Public Use
  Company Number: PHBS2007JP12623

PATIENT
  Age: 30 Year
  Sex: Male

DRUGS (3)
  1. LAMISIL [Suspect]
     Indication: NAIL TINEA
     Dosage: 125 MG/DAY
     Route: 048
     Dates: start: 20070506, end: 20070722
  2. LULICON [Concomitant]
     Dates: start: 20070428
  3. PETROLATUM [Concomitant]
     Route: 065
     Dates: start: 20070428

REACTIONS (1)
  - BLOOD CREATINE PHOSPHOKINASE INCREASED [None]
